FAERS Safety Report 4810848-7 (Version None)
Quarter: 2005Q4

REPORT INFORMATION
  Report Type: 
  Country: None (occurrence: None)
  Receive Date: 20051025
  Receipt Date: 20050706
  Transmission Date: 20060501
  Serious: Yes (Other)
  Sender: FDA-Public Use
  Company Number: 2005BH001027

PATIENT
  Sex: Male

DRUGS (2)
  1. ANTICOAGULANT SODIUM CITRATE SOLUTION 250 ML [Suspect]
  2. SODIUM CHLORIDE 0.9% [Suspect]

REACTIONS (3)
  - ASTHENIA [None]
  - BLOOD URINE PRESENT [None]
  - DIZZINESS [None]
